FAERS Safety Report 16758807 (Version 1)
Quarter: 2019Q3

REPORT INFORMATION
  Report Type: Spontaneous
  Country: JP (occurrence: JP)
  Receive Date: 20190830
  Receipt Date: 20190830
  Transmission Date: 20191005
  Serious: Yes (Other)
  Sender: FDA-Public Use
  Company Number: JP-ROCHE-2275678

PATIENT
  Age: 42 Year
  Sex: Female

DRUGS (6)
  1. ITOPRIDE HYDROCHLORIDE [Concomitant]
     Active Substance: ITOPRIDE HYDROCHLORIDE
     Indication: INFLUENZA
     Route: 048
     Dates: start: 20190104, end: 20190109
  2. CELESTANA [Concomitant]
     Active Substance: BETAMETHASONE\DEXCHLORPHENIRAMINE MALEATE
     Indication: INFLUENZA
     Route: 048
     Dates: start: 20190104, end: 20190109
  3. FAMOTIDINE. [Concomitant]
     Active Substance: FAMOTIDINE
     Indication: INFLUENZA
     Route: 048
     Dates: start: 20190104, end: 20190109
  4. XOFLUZA [Suspect]
     Active Substance: BALOXAVIR MARBOXIL
     Indication: INFLUENZA
     Route: 048
     Dates: start: 20190104, end: 20190104
  5. ACETAMINOPHEN. [Concomitant]
     Active Substance: ACETAMINOPHEN
     Indication: INFLUENZA
     Route: 048
     Dates: start: 20190104, end: 20190109
  6. AMBROXOL HYDROCHLORIDE [Concomitant]
     Active Substance: AMBROXOL HYDROCHLORIDE
     Indication: INFLUENZA
     Route: 048
     Dates: start: 20190104, end: 20190109

REACTIONS (3)
  - Haematuria [Recovered/Resolved]
  - Dysuria [Recovered/Resolved]
  - Urinary retention [Recovered/Resolved]

NARRATIVE: CASE EVENT DATE: 20190104
